FAERS Safety Report 24744006 (Version 1)
Quarter: 2024Q4

REPORT INFORMATION
  Report Type: Spontaneous
  Country: CN (occurrence: CN)
  Receive Date: 20241217
  Receipt Date: 20241217
  Transmission Date: 20250115
  Serious: Yes (Death, Life-Threatening, Other)
  Sender: JOHNSON AND JOHNSON
  Company Number: CN-JNJFOC-20241208063

PATIENT

DRUGS (1)
  1. SELEXIPAG [Suspect]
     Active Substance: SELEXIPAG
     Indication: Product used for unknown indication
     Route: 048

REACTIONS (89)
  - Death [Fatal]
  - Adverse event [Unknown]
  - Pneumonia [Unknown]
  - Pulmonary arterial hypertension [Unknown]
  - Pulmonary veno-occlusive disease [Unknown]
  - Ventilation perfusion mismatch [Unknown]
  - CREST syndrome [Unknown]
  - Right ventricular failure [Unknown]
  - Pulmonary artery dilatation [Unknown]
  - Pulmonary hypertension [Unknown]
  - Syncope [Unknown]
  - Loss of consciousness [Unknown]
  - Sepsis [Unknown]
  - Atrial fibrillation [Unknown]
  - Cardiac failure congestive [Unknown]
  - Internal haemorrhage [Unknown]
  - Hepatic cirrhosis [Unknown]
  - Portal hypertension [Unknown]
  - Congestive hepatopathy [Unknown]
  - Chronic hepatic failure [Unknown]
  - Headache [Unknown]
  - Diarrhoea [Unknown]
  - Dyspnoea [Unknown]
  - Nausea [Unknown]
  - Pain in jaw [Unknown]
  - Pain [Unknown]
  - Pain in extremity [Unknown]
  - Myalgia [Unknown]
  - Fatigue [Unknown]
  - Dizziness [Unknown]
  - Vomiting [Unknown]
  - Malaise [Unknown]
  - Hypotension [Unknown]
  - Decreased appetite [Unknown]
  - Condition aggravated [Unknown]
  - Fluid retention [Unknown]
  - Right atrial pressure increased [Unknown]
  - Walking distance test abnormal [Unknown]
  - Cardiac output increased [Unknown]
  - Pulmonary arterial wedge pressure increased [Unknown]
  - Catheterisation cardiac abnormal [Unknown]
  - Transplant evaluation [Unknown]
  - Pulmonary arterial pressure increased [Unknown]
  - Oxygen consumption increased [Unknown]
  - Right ventricular systolic pressure increased [Unknown]
  - Pulmonary arterial pressure abnormal [Unknown]
  - Brain natriuretic peptide abnormal [Unknown]
  - Catheterisation cardiac [Unknown]
  - Abdominal discomfort [Unknown]
  - Abdominal pain upper [Unknown]
  - Dyspnoea exertional [Unknown]
  - Cough [Unknown]
  - Migraine [Unknown]
  - Arthralgia [Unknown]
  - Back pain [Unknown]
  - Body mass index decreased [Unknown]
  - Oxygen saturation decreased [Unknown]
  - Body mass index increased [Unknown]
  - Haemoglobin decreased [Unknown]
  - Heart rate increased [Unknown]
  - Nasopharyngitis [Unknown]
  - Influenza [Unknown]
  - Bronchitis [Unknown]
  - Palpitations [Unknown]
  - Hypervolaemia [Unknown]
  - Dehydration [Unknown]
  - Gout [Unknown]
  - Flushing [Unknown]
  - Cyanosis [Unknown]
  - Haemodynamic instability [Unknown]
  - Insomnia [Unknown]
  - Sleep disorder [Unknown]
  - Poor quality sleep [Unknown]
  - Telangiectasia [Unknown]
  - Renal disorder [Unknown]
  - Polyuria [Unknown]
  - Oliguria [Unknown]
  - Anaemia [Unknown]
  - Iron deficiency anaemia [Unknown]
  - Gallbladder disorder [Unknown]
  - Duodenal neoplasm [Unknown]
  - Ear pain [Unknown]
  - Ear discomfort [Unknown]
  - Ear congestion [Unknown]
  - Middle ear effusion [Unknown]
  - Multiple allergies [Unknown]
  - Scrotal swelling [Unknown]
  - Adverse event [Unknown]
  - Product use issue [Unknown]
